FAERS Safety Report 17163053 (Version 1)
Quarter: 2019Q4

REPORT INFORMATION
  Report Type: Spontaneous
  Country: US (occurrence: US)
  Receive Date: 20191217
  Receipt Date: 20191217
  Transmission Date: 20200122
  Serious: No
  Sender: FDA-Public Use
  Company Number: US-GLAXOSMITHKLINE-US2019225789

PATIENT

DRUGS (1)
  1. ALLI [Suspect]
     Active Substance: ORLISTAT
     Indication: WEIGHT LOSS DIET
     Dosage: UNK

REACTIONS (6)
  - Oral mucosal eruption [Recovered/Resolved]
  - Gingival disorder [Recovered/Resolved]
  - Blood cholesterol decreased [Recovered/Resolved]
  - Gingival pain [Recovered/Resolved]
  - Therapeutic response unexpected [Unknown]
  - Noninfective gingivitis [Recovered/Resolved]
